FAERS Safety Report 26107500 (Version 1)
Quarter: 2025Q4

REPORT INFORMATION
  Report Type: Spontaneous
  Country: US (occurrence: None)
  Receive Date: 20251126
  Receipt Date: 20251126
  Transmission Date: 20260117
  Serious: Yes (Death)
  Sender: FDA-CTU
  Company Number: None

PATIENT
  Age: 60 Year
  Sex: Male

DRUGS (11)
  1. QUTENZA [Suspect]
     Active Substance: CAPSAICIN
     Dosage: OTHER ROUTE : EXTERNAL;?
     Route: 050
     Dates: start: 20240711
  2. ADVAIR DISKU AER 500/50 [Concomitant]
  3. ALBUTEROL AER HFA [Concomitant]
  4. AMITRIPTYLIN TAB 50MG [Concomitant]
  5. AMLODIPINE [Concomitant]
     Active Substance: AMLODIPINE BESYLATE
  6. APAP/CODEINE TAB 300-30MG [Concomitant]
  7. AZATHIOPRINE [Concomitant]
     Active Substance: AZATHIOPRINE
  8. BUPROPN HCL TAB 300MG  XL [Concomitant]
  9. CHLORHEX GLU SOL 0.12% [Concomitant]
  10. ESOMEPRAZOLE MAGNESIUM [Concomitant]
     Active Substance: ESOMEPRAZOLE MAGNESIUM
  11. FLUTIC/SALME AER 500/50 [Concomitant]

REACTIONS (1)
  - Death [None]

NARRATIVE: CASE EVENT DATE: 20250905
